FAERS Safety Report 26039453 (Version 2)
Quarter: 2025Q4

REPORT INFORMATION
  Report Type: Report from Study
  Country: TW (occurrence: TW)
  Receive Date: 20251113
  Receipt Date: 20251118
  Transmission Date: 20260117
  Serious: Yes (Other)
  Sender: ROCHE
  Company Number: TW-ROCHE-10000432712

PATIENT

DRUGS (4)
  1. RITUXIMAB [Suspect]
     Active Substance: RITUXIMAB
     Indication: Central nervous system lymphoma
     Dosage: UP TO 8 CYCLES
     Route: 042
  2. ACALABRUTINIB [Suspect]
     Active Substance: ACALABRUTINIB
     Indication: Central nervous system lymphoma
     Route: 050
  3. ACALABRUTINIB [Suspect]
     Active Substance: ACALABRUTINIB
     Route: 050
  4. DURVALUMAB [Suspect]
     Active Substance: DURVALUMAB
     Indication: Central nervous system lymphoma
     Route: 050

REACTIONS (13)
  - Alanine aminotransferase increased [Unknown]
  - Anaemia [Unknown]
  - Aspartate aminotransferase increased [Unknown]
  - Atrial fibrillation [Unknown]
  - Erythema multiforme [Unknown]
  - Hyperglycaemia [Unknown]
  - Pneumonia [Unknown]
  - Neutrophil count decreased [Unknown]
  - Platelet count decreased [Unknown]
  - Rash maculo-papular [Unknown]
  - Sepsis [Unknown]
  - Stevens-Johnson syndrome [Unknown]
  - Upper gastrointestinal haemorrhage [Unknown]
